FAERS Safety Report 11862628 (Version 1)
Quarter: 2015Q4

REPORT INFORMATION
  Report Type: Spontaneous
  Country: US (occurrence: None)
  Receive Date: 20151222
  Receipt Date: 20151222
  Transmission Date: 20160305
  Serious: Yes (Life-Threatening)
  Sender: FDA-Public Use
  Company Number: None

PATIENT
  Age: 72 Year
  Sex: Male
  Weight: 86.18 kg

DRUGS (10)
  1. TOPROL XL [Concomitant]
     Active Substance: METOPROLOL SUCCINATE
  2. COZAAR [Concomitant]
     Active Substance: LOSARTAN POTASSIUM
  3. ELIQUIS [Concomitant]
     Active Substance: APIXABAN
  4. SPIRIVA [Concomitant]
     Active Substance: TIOTROPIUM BROMIDE MONOHYDRATE
  5. DALIRESP [Concomitant]
     Active Substance: ROFLUMILAST
  6. SOTALOL HCL [Suspect]
     Active Substance: SOTALOL
     Indication: ATRIAL FIBRILLATION
     Dosage: 1 TWICE DAILY BY MOUTH - ONLY ONCE
     Route: 048
     Dates: start: 20151022, end: 20151022
  7. LIPITOR [Concomitant]
     Active Substance: ATORVASTATIN CALCIUM
  8. BROVANA [Concomitant]
     Active Substance: ARFORMOTEROL TARTRATE
  9. IPRATROPIUM BROMIDE. [Concomitant]
     Active Substance: IPRATROPIUM BROMIDE
  10. MULTIVITAMINS [Concomitant]
     Active Substance: VITAMINS

REACTIONS (5)
  - Angina pectoris [None]
  - Dyspnoea [None]
  - Dizziness [None]
  - Palpitations [None]
  - Asthenia [None]
